FAERS Safety Report 7769645-5 (Version None)
Quarter: 2011Q3

REPORT INFORMATION
  Report Type: 
  Country: None (occurrence: None)
  Receive Date: 20110922
  Receipt Date: 20110114
  Transmission Date: 20111222
  Serious: No
  Sender: FDA-Public Use
  Company Number: US-ASTRAZENECA-2011SE03114

PATIENT

DRUGS (2)
  1. SEROQUEL [Suspect]
     Route: 048
  2. EFFEXOR [Concomitant]

REACTIONS (2)
  - BIPOLAR I DISORDER [None]
  - DRUG WITHDRAWAL SYNDROME [None]
